FAERS Safety Report 7069746-3 (Version None)
Quarter: 2010Q4

REPORT INFORMATION
  Report Type: 
  Country: None (occurrence: None)
  Receive Date: 20101028
  Receipt Date: 20100521
  Transmission Date: 20110411
  Serious: No
  Sender: FDA-Public Use
  Company Number: US-WYE-H15376910

PATIENT
  Age: 22 Year
  Sex: Male

DRUGS (2)
  1. EFFEXOR [Suspect]
     Dosage: UNKNOWN
  2. ALBUTEROL [Concomitant]

REACTIONS (1)
  - DRUG SCREEN FALSE POSITIVE [None]
